FAERS Safety Report 9855683 (Version 1)
Quarter: 2014Q1

REPORT INFORMATION
  Report Type: Spontaneous
  Country: DE (occurrence: DE)
  Receive Date: 20140130
  Receipt Date: 20140130
  Transmission Date: 20141002
  Serious: Yes (Hospitalization)
  Sender: FDA-Public Use
  Company Number: DE-PFIZER INC-2014023632

PATIENT
  Age: 42 Year
  Sex: Male

DRUGS (1)
  1. AMPICILLIN SODIUM/SULBACTAM SODIUM [Suspect]
     Indication: PNEUMONIA
     Dosage: 2 DF, 2X/DAY OF 375/125
     Route: 048
     Dates: start: 20140104, end: 20140111

REACTIONS (7)
  - Disorientation [Unknown]
  - Hallucination, auditory [Unknown]
  - Hallucination, visual [Unknown]
  - Tangentiality [Unknown]
  - Thought blocking [Unknown]
  - Impulse-control disorder [Unknown]
  - Psychotic disorder [Unknown]
